FAERS Safety Report 4496823-3 (Version None)
Quarter: 2004Q4

REPORT INFORMATION
  Report Type: 
  Country: None (occurrence: None)
  Receive Date: 20041109
  Receipt Date: 20041102
  Transmission Date: 20050328
  Serious: Yes (Hospitalization)
  Sender: FDA-Public Use
  Company Number: PHBS2004IT14883

PATIENT
  Age: 61 Year
  Sex: Male

DRUGS (1)
  1. LEPONEX [Suspect]
     Indication: MEDICATION ERROR
     Dosage: 200 MG, ONCE/SINGLE
     Route: 065

REACTIONS (3)
  - ACCIDENTAL EXPOSURE [None]
  - LETHARGY [None]
  - SPEECH DISORDER [None]
